FAERS Safety Report 16100308 (Version 2)
Quarter: 2019Q2

REPORT INFORMATION
  Report Type: Report from Study
  Country: US (occurrence: US)
  Receive Date: 20190321
  Receipt Date: 20190627
  Transmission Date: 20190711
  Serious: No
  Sender: FDA-Public Use
  Company Number: PHEH2019US012012

PATIENT
  Sex: Female

DRUGS (1)
  1. GILENYA [Suspect]
     Active Substance: FINGOLIMOD HYDROCHLORIDE
     Indication: MULTIPLE SCLEROSIS
     Dosage: 0.5 MG, QD
     Route: 048

REACTIONS (8)
  - Taste disorder [Unknown]
  - Tongue discomfort [Unknown]
  - Paraesthesia [Unknown]
  - Flatulence [Recovered/Resolved]
  - Memory impairment [Unknown]
  - Abdominal discomfort [Unknown]
  - Gastric disorder [Unknown]
  - Dyspepsia [Unknown]
